FAERS Safety Report 10457854 (Version 1)
Quarter: 2014Q3

REPORT INFORMATION
  Report Type: Report from Study
  Country: IT (occurrence: IT)
  Receive Date: 20140916
  Receipt Date: 20140916
  Transmission Date: 20150326
  Serious: Yes (Other)
  Sender: FDA-Public Use
  Company Number: IT-GLAXOSMITHKLINE-B1025684A

PATIENT
  Age: 62 Year
  Sex: Female

DRUGS (3)
  1. PAZOPANIB [Suspect]
     Active Substance: PAZOPANIB
     Indication: SARCOMA
     Dosage: 800MG PER DAY
     Dates: start: 20120306, end: 20120822
  2. LYRICA [Concomitant]
     Active Substance: PREGABALIN
     Indication: PAIN
     Dosage: 75MG TWICE PER DAY
     Route: 048
  3. ACTIQ [Concomitant]
     Active Substance: FENTANYL CITRATE
     Indication: PAIN
     Route: 048

REACTIONS (1)
  - Metrorrhagia [Recovered/Resolved]

NARRATIVE: CASE EVENT DATE: 20120316
